FAERS Safety Report 4526453-6 (Version None)
Quarter: 2004Q4

REPORT INFORMATION
  Report Type: 
  Country: None (occurrence: None)
  Receive Date: 20041210
  Receipt Date: 20041202
  Transmission Date: 20050328
  Serious: Yes (Hospitalization)
  Sender: FDA-Public Use
  Company Number: STA-AE-04-MTX-604

PATIENT
  Age: 58 Year
  Sex: Male

DRUGS (10)
  1. METHOTREXATE [Suspect]
     Indication: RHEUMATOID ARTHRITIS
     Dosage: 20 MG 1X PER 1 WK, ORAL
     Route: 048
     Dates: start: 20010215, end: 20040715
  2. ENBREL [Suspect]
     Indication: RHEUMATOID ARTHRITIS
     Dosage: 25 MG 2X PER 1 WK, SC
     Route: 058
     Dates: start: 20010215, end: 20040730
  3. FUROSEMIDE [Concomitant]
  4. ACENOCOCOUMAROL (ACENOCOUMAROL) [Concomitant]
  5. ATORVASTATIN (ATORVASTATIN) [Concomitant]
  6. METOPROLOL TARTRATE [Concomitant]
  7. ISOSORBIDE DINITRATE [Concomitant]
  8. FOSINOPRIL SODIUM [Concomitant]
  9. FOLIC ACID [Concomitant]
  10. CELECOXIB (CELECOXIB) [Concomitant]

REACTIONS (6)
  - BLOOD BLISTER [None]
  - DEHYDRATION [None]
  - DIARRHOEA [None]
  - DIARRHOEA HAEMORRHAGIC [None]
  - RASH PUSTULAR [None]
  - THROMBOCYTOPENIA [None]
